FAERS Safety Report 24906405 (Version 1)
Quarter: 2025Q1

REPORT INFORMATION
  Report Type: Spontaneous
  Country: CN (occurrence: CN)
  Receive Date: 20250130
  Receipt Date: 20250130
  Transmission Date: 20250408
  Serious: Yes (Other)
  Sender: NOVARTIS
  Company Number: CN-002147023-NVSC2025CN014501

PATIENT
  Age: 29 Year
  Sex: Female

DRUGS (4)
  1. LETROZOLE [Suspect]
     Active Substance: LETROZOLE
     Indication: Ovulation induction
     Route: 065
     Dates: start: 2021
  2. PROGESTERONE [Suspect]
     Active Substance: PROGESTERONE
     Indication: Uterine contractions during pregnancy
     Route: 030
     Dates: start: 2021
  3. PROGESTERONE [Suspect]
     Active Substance: PROGESTERONE
     Route: 065
  4. CEFUROXIME SODIUM [Suspect]
     Active Substance: CEFUROXIME SODIUM
     Indication: Prophylaxis
     Route: 065
     Dates: start: 2021

REACTIONS (3)
  - Premature delivery [Unknown]
  - Maternal exposure before pregnancy [Unknown]
  - Off label use [Unknown]

NARRATIVE: CASE EVENT DATE: 20210101
